FAERS Safety Report 24187082 (Version 1)
Quarter: 2024Q3

REPORT INFORMATION
  Report Type: Report from Study
  Country: US (occurrence: None)
  Receive Date: 20240808
  Receipt Date: 20240808
  Transmission Date: 20241017
  Serious: Yes (Other)
  Sender: ASTRAZENECA
  Company Number: 2020SE19798

PATIENT
  Sex: Female

DRUGS (4)
  1. ARIMIDEX [Suspect]
     Active Substance: ANASTROZOLE
     Route: 048
  2. FASLODEX [Suspect]
     Active Substance: FULVESTRANT
     Route: 030
     Dates: start: 2011, end: 201907
  3. IBRANCE [Suspect]
     Active Substance: PALBOCICLIB
     Route: 048
  4. VIRSYCLINE [Concomitant]

REACTIONS (8)
  - Autoimmune disorder [Unknown]
  - Intestinal obstruction [Unknown]
  - Human epidermal growth factor receptor negative [Unknown]
  - Hepatic lesion [Unknown]
  - Mental disorder [Unknown]
  - Memory impairment [Unknown]
  - Bipolar disorder [Unknown]
  - Drug ineffective [Recovered/Resolved]
